FAERS Safety Report 6541779-2 (Version None)
Quarter: 2010Q1

REPORT INFORMATION
  Report Type: 
  Country: None (occurrence: None)
  Receive Date: 20100119
  Receipt Date: 20100107
  Transmission Date: 20100710
  Serious: No
  Sender: FDA-Public Use
  Company Number: PHEH2010US00499

PATIENT
  Sex: Male

DRUGS (1)
  1. TASIGNA [Suspect]
     Dosage: 200 MG, Q12H
     Route: 048
     Dates: start: 20100105

REACTIONS (2)
  - ABDOMINAL PAIN [None]
  - UNDERDOSE [None]
